FAERS Safety Report 18310740 (Version 9)
Quarter: 2021Q3

REPORT INFORMATION
  Report Type: Spontaneous
  Country: CA (occurrence: CA)
  Receive Date: 20200925
  Receipt Date: 20210823
  Transmission Date: 20211014
  Serious: Yes (Other)
  Sender: FDA-Public Use
  Company Number: CA-CELLTRION INC.-2018CA024031

PATIENT

DRUGS (15)
  1. INFLECTRA [Suspect]
     Active Substance: INFLIXIMAB-DYYB
     Indication: COLITIS ULCERATIVE
     Dosage: 5 MG/KG, EVERY 2, 6 WEEKS, THEN EVERY 8 WEEKS (INFLECTRA 100MG/VIAL)
     Route: 042
     Dates: start: 20181015
  2. INFLECTRA [Suspect]
     Active Substance: INFLIXIMAB-DYYB
     Dosage: 5 MG/KG, EVERY 2, 6 WEEKS,THEN EVERY 8 WEEKS
     Route: 042
     Dates: start: 20191209
  3. INFLECTRA [Suspect]
     Active Substance: INFLIXIMAB-DYYB
     Dosage: 5 MG/KG, EVERY 2, 6 WEEKS,THEN EVERY 8 WEEKS
     Route: 042
     Dates: start: 20200525
  4. INFLECTRA [Suspect]
     Active Substance: INFLIXIMAB-DYYB
     Dosage: 5 MG/KG, EVERY 2, 6 WEEKS,THEN EVERY 8 WEEKS
     Route: 042
     Dates: start: 20210531
  5. PREDNISONE. [Concomitant]
     Active Substance: PREDNISONE
     Dosage: UNK
     Route: 065
  6. INFLECTRA [Suspect]
     Active Substance: INFLIXIMAB-DYYB
     Indication: CROHN^S DISEASE
     Dosage: 5 MG/KG, EVERY 2, 6 WEEKS,THEN EVERY 8 WEEKS
     Route: 042
     Dates: start: 20181030
  7. INFLECTRA [Suspect]
     Active Substance: INFLIXIMAB-DYYB
     Dosage: 5 MG/KG, EVERY 2, 6 WEEKS,THEN EVERY 8 WEEKS
     Route: 042
     Dates: start: 20190214
  8. INFLECTRA [Suspect]
     Active Substance: INFLIXIMAB-DYYB
     Dosage: 5 MG/KG, EVERY 2, 6 WEEKS,THEN EVERY 8 WEEKS
     Route: 042
     Dates: start: 20181126
  9. INFLECTRA [Suspect]
     Active Substance: INFLIXIMAB-DYYB
     Dosage: 5 MG/KG, EVERY 2, 6 WEEKS,THEN EVERY 8 WEEKS
     Route: 042
     Dates: start: 20190606
  10. INFLECTRA [Suspect]
     Active Substance: INFLIXIMAB-DYYB
     Dosage: 5 MG/KG, EVERY 2, 6 WEEKS,THEN EVERY 8 WEEKS
     Route: 042
     Dates: start: 20190606
  11. INFLECTRA [Suspect]
     Active Substance: INFLIXIMAB-DYYB
     Dosage: 5 MG/KG, EVERY 2, 6 WEEKS,THEN EVERY 8 WEEKS
     Route: 042
     Dates: start: 20201221
  12. INFLECTRA [Suspect]
     Active Substance: INFLIXIMAB-DYYB
     Dosage: 5 MG/KG, EVERY 2, 6 WEEKS,THEN EVERY 8 WEEKS
     Route: 042
     Dates: start: 20191015
  13. INFLECTRA [Suspect]
     Active Substance: INFLIXIMAB-DYYB
     Dosage: 5 MG/KG, EVERY 2, 6 WEEKS,THEN EVERY 8 WEEKS
     Route: 042
     Dates: start: 20200720, end: 2020
  14. INFLECTRA [Suspect]
     Active Substance: INFLIXIMAB-DYYB
     Dosage: 5 MG/KG, EVERY 2, 6 WEEKS,THEN EVERY 8 WEEKS
     Route: 042
     Dates: start: 20190820
  15. INFLECTRA [Suspect]
     Active Substance: INFLIXIMAB-DYYB
     Dosage: 5 MG/KG, EVERY 2, 6 WEEKS,THEN EVERY 8 WEEKS
     Route: 042
     Dates: start: 20210812

REACTIONS (14)
  - Feeling of body temperature change [Unknown]
  - Pneumonia [Recovered/Resolved]
  - Fungal infection [Not Recovered/Not Resolved]
  - Heart rate increased [Unknown]
  - Cough [Unknown]
  - Malignant melanoma [Unknown]
  - Chills [Unknown]
  - Product dose omission issue [Unknown]
  - Fatigue [Unknown]
  - Pain [Unknown]
  - Inappropriate schedule of product administration [Unknown]
  - Impaired healing [Recovered/Resolved]
  - Nasopharyngitis [Unknown]
  - Arthralgia [Unknown]

NARRATIVE: CASE EVENT DATE: 20181030
